FAERS Safety Report 8674974 (Version 2)
Quarter: 2013Q2

REPORT INFORMATION
  Report Type: Spontaneous
  Country: US (occurrence: US)
  Receive Date: 20120720
  Receipt Date: 20130430
  Transmission Date: 20140414
  Serious: Yes (Hospitalization, Other)
  Sender: FDA-Public Use
  Company Number: US-NOVOPROD-356104

PATIENT
  Age: 2 Year
  Sex: Male
  Weight: 11.3 kg

DRUGS (1)
  1. NORDITROPIN FLEXPRO 6.7 MG/ML [Suspect]
     Indication: PRODUCT USED FOR UNKNOWN INDICATION
     Dosage: 0.4 MG QD
     Route: 058

REACTIONS (3)
  - Convulsion [Unknown]
  - Blood sodium increased [Unknown]
  - Pyrexia [Unknown]
